FAERS Safety Report 5545937-5 (Version None)
Quarter: 2007Q4

REPORT INFORMATION
  Report Type: 
  Country: None (occurrence: None)
  Receive Date: 20071211
  Receipt Date: 20071023
  Transmission Date: 20080405
  Serious: No
  Sender: FDA-Public Use
  Company Number: US-ASTRAZENECA-2007UW23500

PATIENT
  Age: 62 Year
  Sex: Female
  Weight: 95.5 kg

DRUGS (6)
  1. SYMBICORT [Suspect]
     Indication: ASTHMA
     Dosage: 160/4.5 UG/2 PUFFS BID=640/18.0 UG DAILY
     Route: 055
     Dates: start: 20070911
  2. XOPENEX HFA [Concomitant]
     Indication: ASTHMA
     Route: 048
  3. ZYRTEC [Concomitant]
     Indication: MULTIPLE ALLERGIES
     Route: 048
  4. SINGULAIR [Concomitant]
     Indication: ASTHMA
     Route: 048
  5. XOLAIR [Concomitant]
     Indication: ASTHMA
  6. SYNTHROID [Concomitant]
     Indication: THYROID DISORDER
     Route: 048

REACTIONS (1)
  - RESTLESS LEGS SYNDROME [None]
